FAERS Safety Report 4301102-0 (Version None)
Quarter: 2004Q1

REPORT INFORMATION
  Report Type: 
  Country: None (occurrence: None)
  Receive Date: 20040219
  Receipt Date: 20031023
  Transmission Date: 20041129
  Serious: Yes (Hospitalization, Other)
  Sender: FDA-Public Use
  Company Number: KII-2003-0007272

PATIENT
  Age: 23 Year
  Sex: Male

DRUGS (1)
  1. MORPHINE [Suspect]
     Indication: DRUG USE FOR UNKNOWN INDICATION

REACTIONS (18)
  - ABNORMAL BEHAVIOUR [None]
  - AGGRESSION [None]
  - BLOOD CREATINE INCREASED [None]
  - BLOOD POTASSIUM DECREASED [None]
  - BLOOD PRESSURE DECREASED [None]
  - BLOOD PRESSURE SYSTOLIC INCREASED [None]
  - BLOOD UREA INCREASED [None]
  - BODY TEMPERATURE INCREASED [None]
  - COUGH [None]
  - CRACKLES LUNG [None]
  - CYANOSIS [None]
  - DRY SKIN [None]
  - LETHARGY [None]
  - LOSS OF CONSCIOUSNESS [None]
  - OVERDOSE [None]
  - OXYGEN SATURATION DECREASED [None]
  - PERIPHERAL COLDNESS [None]
  - RHABDOMYOLYSIS [None]
